FAERS Safety Report 9482717 (Version 1)
Quarter: 2013Q3

REPORT INFORMATION
  Report Type: Spontaneous
  Country: GB (occurrence: GB)
  Receive Date: 20130828
  Receipt Date: 20130828
  Transmission Date: 20140515
  Serious: Yes (Life-Threatening)
  Sender: FDA-Public Use
  Company Number: GB-TEVA-428149ISR

PATIENT
  Age: 72 Year
  Sex: Female

DRUGS (3)
  1. CLARITHROMYCIN [Suspect]
  2. AMIODARONE [Suspect]
     Dates: start: 20130808, end: 20130810
  3. CHLORPROMAZINE [Suspect]

REACTIONS (4)
  - Torsade de pointes [Recovered/Resolved]
  - Cardiac arrest [Recovered/Resolved]
  - Electrocardiogram QT prolonged [Unknown]
  - Ventricular fibrillation [Recovered/Resolved]
